FAERS Safety Report 7475862-4 (Version None)
Quarter: 2011Q2

REPORT INFORMATION
  Report Type: 
  Country: None (occurrence: None)
  Receive Date: 20110504
  Receipt Date: 20110411
  Transmission Date: 20111010
  Serious: Yes (Other)
  Sender: FDA-Public Use
  Company Number: 030160

PATIENT
  Sex: Female
  Weight: 73 kg

DRUGS (4)
  1. CIMZIA [Suspect]
     Indication: RHEUMATOID ARTHRITIS
     Dosage: SUBCUTANEOUS
     Route: 058
     Dates: start: 20110326
  2. PREDNISONE [Concomitant]
  3. ATIVAN [Concomitant]
  4. ZYRTEC [Concomitant]

REACTIONS (21)
  - PRURITUS [None]
  - EYE PAIN [None]
  - SKIN BURNING SENSATION [None]
  - NERVOUSNESS [None]
  - BUTTERFLY RASH [None]
  - RASH ERYTHEMATOUS [None]
  - ABDOMINAL PAIN UPPER [None]
  - DYSPNOEA [None]
  - INSOMNIA [None]
  - SWELLING FACE [None]
  - EYE SWELLING [None]
  - NIGHT SWEATS [None]
  - RESTLESSNESS [None]
  - DRY EYE [None]
  - HYPERSENSITIVITY [None]
  - CHILLS [None]
  - URTICARIA [None]
  - SUNBURN [None]
  - PRURITUS GENERALISED [None]
  - ARTHRITIS [None]
  - RASH GENERALISED [None]
